FAERS Safety Report 4841343-7 (Version None)
Quarter: 2005Q4

REPORT INFORMATION
  Report Type: 
  Country: None (occurrence: None)
  Receive Date: 20051130
  Receipt Date: 20050818
  Transmission Date: 20060501
  Serious: Yes (Other)
  Sender: FDA-Public Use
  Company Number: DE-GLAXOSMITHKLINE-D0047327A

PATIENT
  Age: 64 Year
  Sex: Female
  Weight: 66 kg

DRUGS (2)
  1. ZOVIRAX [Suspect]
     Indication: HERPES SIMPLEX
     Route: 047
  2. INFLANEFRAN [Concomitant]
     Route: 047

REACTIONS (2)
  - CORNEAL EPITHELIUM DISORDER [None]
  - DRUG INTOLERANCE [None]
